FAERS Safety Report 11734015 (Version 3)
Quarter: 2016Q1

REPORT INFORMATION
  Report Type: Spontaneous
  Country: US (occurrence: US)
  Receive Date: 20151113
  Receipt Date: 20160208
  Transmission Date: 20160525
  Serious: Yes (Death, Hospitalization)
  Sender: FDA-Public Use
  Company Number: US-009507513-1511USA006192

PATIENT
  Sex: Male

DRUGS (1)
  1. KEYTRUDA [Suspect]
     Active Substance: PEMBROLIZUMAB
     Indication: THYROID CANCER METASTATIC
     Dosage: UNK

REACTIONS (5)
  - Malaise [Unknown]
  - Death [Fatal]
  - Adverse event [Unknown]
  - Product use issue [Unknown]
  - Drug dose omission [Unknown]
